FAERS Safety Report 18591045 (Version 1)
Quarter: 2020Q4

REPORT INFORMATION
  Report Type: Spontaneous
  Country: GB (occurrence: GB)
  Receive Date: 20201208
  Receipt Date: 20201208
  Transmission Date: 20210114
  Serious: Yes (Hospitalization)
  Sender: FDA-Public Use
  Company Number: GB-CURIUM-202000468

PATIENT
  Age: 66 Year
  Sex: Female
  Weight: 66 kg

DRUGS (3)
  1. SYNTHAMIN [Concomitant]
     Active Substance: AMINO ACIDS
  2. YTTRIUM OXODOTREOTIDE Y-90 [Suspect]
     Active Substance: YTTRIUM OXODOTREOTIDE Y-90
     Indication: METASTATIC CARCINOID TUMOUR
     Dosage: STANDARD DOSE.
     Route: 042
     Dates: start: 20200624, end: 20200624
  3. INDIUM (111IN) (CHLORIDE) [Suspect]
     Active Substance: INDIUM IN-111 CHLORIDE
     Indication: METASTATIC CARCINOID TUMOUR
     Dosage: STANDARD DOSE.
     Route: 042
     Dates: start: 20200624, end: 20200624

REACTIONS (3)
  - Confusional state [Recovered/Resolved]
  - Hyponatraemia [Recovered/Resolved]
  - Epilepsy [Recovered/Resolved]

NARRATIVE: CASE EVENT DATE: 20200624
